FAERS Safety Report 8153352-3 (Version None)
Quarter: 2012Q1

REPORT INFORMATION
  Report Type: 
  Country: None (occurrence: None)
  Receive Date: 20120221
  Receipt Date: 20120220
  Transmission Date: 20120608
  Serious: Yes (Life-Threatening, Hospitalization, Other)
  Sender: FDA-Public Use
  Company Number: DE-PFIZER INC-2012044379

PATIENT
  Age: 71 Year
  Sex: Male
  Weight: 53 kg

DRUGS (10)
  1. NOVALGIN [Suspect]
     Indication: PAIN
     Dosage: 4X1000 MG (4X40 DROPS) AT LEAST ONCE WEEKLY
     Route: 048
     Dates: start: 20101213, end: 20110301
  2. CLINDAMYCIN HCL [Suspect]
     Indication: EXTREMITY NECROSIS
     Dosage: 600 MG, 1X/DAY
     Dates: start: 20110125, end: 20110213
  3. IBUPROFEN [Suspect]
     Dosage: 600 MG, 3X/DAY
     Route: 048
     Dates: start: 20110124, end: 20110214
  4. RAMIPRIL [Concomitant]
     Dosage: 5 MG, WEEKLY
     Route: 048
     Dates: start: 20101213
  5. SIMVASTATIN [Concomitant]
     Dosage: 40 MG, 1X/DAY
     Route: 048
     Dates: start: 20110214
  6. IBUPROFEN [Suspect]
     Indication: PAIN
     Dosage: 200 MG, AT LEAST ONCE WEEKLY
     Route: 048
     Dates: start: 20110215, end: 20110318
  7. OMEPRAZOLE [Concomitant]
     Dosage: 20 MG, 1X1 GASTRO-RESISTANT TABLET AT 20 MG WEEKLY
     Route: 048
     Dates: start: 20101213
  8. IBUPROFEN [Suspect]
     Indication: PAIN
     Dosage: 600 MG, 2X/DAY
     Route: 048
     Dates: start: 20101213, end: 20110123
  9. ASPIRIN [Concomitant]
     Dosage: 100 MG, 1X/DAY
     Route: 048
     Dates: start: 20110214
  10. RAMIPRIL [Concomitant]
     Indication: HYPERTENSION
     Dosage: 5/25 MG, 1X1 TABLET DAILY
     Route: 048
     Dates: start: 20110214, end: 20110317

REACTIONS (1)
  - RENAL FAILURE ACUTE [None]
